FAERS Safety Report 15474594 (Version 1)
Quarter: 2018Q4

REPORT INFORMATION
  Report Type: Spontaneous
  Country: FR (occurrence: FR)
  Receive Date: 20181008
  Receipt Date: 20181008
  Transmission Date: 20190205
  Serious: Yes (Hospitalization, Other)
  Sender: FDA-Public Use
  Company Number: FR-009507513-1810FRA000352

PATIENT
  Sex: Male

DRUGS (3)
  1. MODOPAR [Concomitant]
     Active Substance: BENSERAZIDE HYDROCHLORIDE\LEVODOPA
  2. SINEMET [Suspect]
     Active Substance: CARBIDOPA\LEVODOPA
     Dosage: UNK
     Route: 048
     Dates: start: 2016
  3. SINEMET L.P. [Suspect]
     Active Substance: CARBIDOPA\LEVODOPA
     Dosage: STRENGTH REPORTED AS 100/25 LP
     Route: 048

REACTIONS (2)
  - Drug ineffective [Unknown]
  - Parkinson^s disease [Unknown]
